FAERS Safety Report 15777033 (Version 1)
Quarter: 2018Q4

REPORT INFORMATION
  Report Type: Spontaneous
  Country: PT (occurrence: PT)
  Receive Date: 20181231
  Receipt Date: 20181231
  Transmission Date: 20190205
  Serious: Yes (Hospitalization, Other)
  Sender: FDA-Public Use
  Company Number: PT-PFIZER INC-2018531986

PATIENT
  Age: 87 Year
  Sex: Male

DRUGS (3)
  1. SPIRONOLACTONE. [Suspect]
     Active Substance: SPIRONOLACTONE
  2. FUROSEMIDE. [Concomitant]
     Active Substance: FUROSEMIDE
  3. CARBIDOPA LEVODOPA [Concomitant]
     Active Substance: CARBIDOPA\LEVODOPA

REACTIONS (2)
  - Hepatic lesion [Recovering/Resolving]
  - Hepatitis cholestatic [Recovering/Resolving]
